FAERS Safety Report 6165099-3 (Version None)
Quarter: 2009Q2

REPORT INFORMATION
  Report Type: 
  Country: None (occurrence: None)
  Receive Date: 20090421
  Receipt Date: 20090421
  Transmission Date: 20091009
  Serious: Yes (Hospitalization)
  Sender: FDA-Public Use
  Company Number: None

PATIENT
  Age: 6 Year
  Sex: Female
  Weight: 28 kg

DRUGS (3)
  1. VANCOMYCIN HCL [Suspect]
     Indication: PROPHYLAXIS
     Dosage: 500MG ONE TIME IV
     Route: 042
     Dates: start: 20080130, end: 20090130
  2. VANCOMYCIN HCL [Suspect]
     Indication: SURGERY
     Dosage: 500MG ONE TIME IV
     Route: 042
     Dates: start: 20080130, end: 20090130
  3. MIDAZOLAM HCL [Concomitant]

REACTIONS (6)
  - HYPOXIA [None]
  - PROCEDURAL COMPLICATION [None]
  - PROCEDURAL HYPOTENSION [None]
  - RASH ERYTHEMATOUS [None]
  - RESPIRATORY DISTRESS [None]
  - UNEVALUABLE EVENT [None]
